FAERS Safety Report 7240109-0 (Version None)
Quarter: 2011Q1

REPORT INFORMATION
  Report Type: 
  Country: None (occurrence: None)
  Receive Date: 20110124
  Receipt Date: 20110118
  Transmission Date: 20110831
  Serious: Yes (Hospitalization)
  Sender: FDA-Public Use
  Company Number: US-JNJFOC-20110105058

PATIENT
  Sex: Female

DRUGS (6)
  1. OXYCODONE [Concomitant]
     Indication: PRODUCT USED FOR UNKNOWN INDICATION
     Dosage: 1-2 TABLETS
     Route: 048
  2. OXYCONTIN [Concomitant]
     Indication: PRODUCT USED FOR UNKNOWN INDICATION
     Route: 048
  3. LEXAPRO [Concomitant]
     Indication: DEPRESSION
     Route: 048
  4. OXYCODONE [Concomitant]
     Indication: PAIN
     Dosage: AS NEEDED
     Route: 048
  5. PROVIGIL [Concomitant]
     Indication: PRODUCT USED FOR UNKNOWN INDICATION
     Route: 065
  6. DURAGESIC-50 [Suspect]
     Indication: PAIN
     Route: 062

REACTIONS (2)
  - THERAPEUTIC RESPONSE DECREASED [None]
  - UPPER LIMB FRACTURE [None]
